FAERS Safety Report 19776379 (Version 4)
Quarter: 2022Q1

REPORT INFORMATION
  Report Type: Report from Study
  Country: US (occurrence: US)
  Receive Date: 20210901
  Receipt Date: 20220301
  Transmission Date: 20220423
  Serious: No
  Sender: FDA-Public Use
  Company Number: US-NOVARTISTESTPH-NVSC2021US197477

PATIENT
  Age: 68 Year
  Sex: Female

DRUGS (3)
  1. ENTRESTO [Suspect]
     Active Substance: SACUBITRIL\VALSARTAN
     Indication: Product used for unknown indication
     Dosage: 1 DOSAGE FORM, BID (24/26 MG)
     Route: 048
     Dates: start: 20210516
  2. LISINOPRIL [Suspect]
     Active Substance: LISINOPRIL
     Indication: Product used for unknown indication
     Dosage: UNK
     Route: 065
     Dates: start: 20170101, end: 20170401
  3. CHILDRENS BENADRYL ALLERGY [Suspect]
     Active Substance: DIPHENHYDRAMINE HYDROCHLORIDE
     Indication: Product used for unknown indication
     Dosage: UNK
     Route: 048
     Dates: start: 20211101

REACTIONS (13)
  - Hyperhidrosis [Recovering/Resolving]
  - Erythema [Recovering/Resolving]
  - Memory impairment [Not Recovered/Not Resolved]
  - Clumsiness [Not Recovered/Not Resolved]
  - Muscle tightness [Not Recovered/Not Resolved]
  - Myalgia [Not Recovered/Not Resolved]
  - Hypoaesthesia [Not Recovered/Not Resolved]
  - Eye pruritus [Not Recovered/Not Resolved]
  - Skin plaque [Not Recovered/Not Resolved]
  - Feeling cold [Not Recovered/Not Resolved]
  - Pruritus [Recovering/Resolving]
  - Cough [Recovered/Resolved]
  - Headache [Recovering/Resolving]

NARRATIVE: CASE EVENT DATE: 20211101
